FAERS Safety Report 11694176 (Version 1)
Quarter: 2015Q4

REPORT INFORMATION
  Report Type: Report from Study
  Country: JP (occurrence: JP)
  Receive Date: 20151103
  Receipt Date: 20151103
  Transmission Date: 20160304
  Serious: Yes (Death, Hospitalization, Other)
  Sender: FDA-Public Use
  Company Number: JP-INCYTE CORPORATION-2015IN005501

PATIENT
  Age: 72 Year
  Sex: Female

DRUGS (10)
  1. ALKERAN [Concomitant]
     Active Substance: MELPHALAN
     Dosage: 4 MG, UNK
     Route: 048
     Dates: start: 20150409, end: 20150513
  2. ALKERAN [Concomitant]
     Active Substance: MELPHALAN
     Dosage: 2 MG, UNK
     Route: 048
     Dates: start: 20150326, end: 20150408
  3. HYDREA [Concomitant]
     Active Substance: HYDROXYUREA
     Dosage: 1000 MG, UNK
     Route: 048
     Dates: start: 20141125
  4. PREDONINE [Concomitant]
     Active Substance: PREDNISOLONE\PREDNISOLONE ACETATE\PREDNISOLONE SODIUM SUCCINATE
     Indication: MYELOFIBROSIS
     Dosage: 15 MG, UNK
     Route: 048
     Dates: start: 20141003, end: 20141007
  5. JAKAFI [Suspect]
     Active Substance: RUXOLITINIB
     Indication: MYELOFIBROSIS
     Dosage: 5 MG, BID
     Route: 048
     Dates: start: 20140929, end: 20150826
  6. ALKERAN [Concomitant]
     Active Substance: MELPHALAN
     Indication: MYELOFIBROSIS
     Dosage: 4 MG, UNK
     Route: 048
     Dates: start: 20141021, end: 20150218
  7. PREDONINE [Concomitant]
     Active Substance: PREDNISOLONE\PREDNISOLONE ACETATE\PREDNISOLONE SODIUM SUCCINATE
     Dosage: 10 MG, UNK
     Route: 048
     Dates: start: 20150205, end: 20150826
  8. HYDREA [Concomitant]
     Active Substance: HYDROXYUREA
     Indication: MYELOFIBROSIS
     Dosage: 500 MG, UNK
     Route: 048
     Dates: start: 20141021, end: 20141124
  9. PREDONINE [Concomitant]
     Active Substance: PREDNISOLONE\PREDNISOLONE ACETATE\PREDNISOLONE SODIUM SUCCINATE
     Dosage: 10 MG, UNK
     Route: 048
     Dates: start: 20141008, end: 20141020
  10. PREDONINE [Concomitant]
     Active Substance: PREDNISOLONE\PREDNISOLONE ACETATE\PREDNISOLONE SODIUM SUCCINATE
     Dosage: 20 MG, UNK
     Route: 048
     Dates: start: 20141021, end: 20150204

REACTIONS (5)
  - Thrombocytopenia [Fatal]
  - Pneumocystis jirovecii pneumonia [Fatal]
  - Blood lactate dehydrogenase increased [Unknown]
  - Myelofibrosis [Unknown]
  - Blood pressure diastolic decreased [Unknown]

NARRATIVE: CASE EVENT DATE: 20150330
